FAERS Safety Report 6280593-2 (Version None)
Quarter: 2009Q3

REPORT INFORMATION
  Report Type: 
  Country: None (occurrence: None)
  Receive Date: 20090724
  Receipt Date: 20080912
  Transmission Date: 20100115
  Serious: Yes (Hospitalization)
  Sender: FDA-Public Use
  Company Number: A0748285A

PATIENT
  Age: 59 Year
  Sex: Male
  Weight: 122.7 kg

DRUGS (12)
  1. AVANDIA [Suspect]
     Dosage: 4MG PER DAY
     Route: 048
     Dates: start: 20031001, end: 20060301
  2. INSPRA [Concomitant]
  3. AVAPRO [Concomitant]
  4. AMARYL [Concomitant]
  5. INDOMETHACIN [Concomitant]
  6. WARFARIN SODIUM [Concomitant]
  7. COREG [Concomitant]
  8. COLCHICINE [Concomitant]
  9. KLOR-CON [Concomitant]
  10. ALOPURINOL [Concomitant]
  11. TORSEMIDE [Concomitant]
  12. UNSPECIFIED MEDICATION [Concomitant]

REACTIONS (1)
  - CARDIAC FAILURE CONGESTIVE [None]
